FAERS Safety Report 22127305 (Version 1)
Quarter: 2023Q1

REPORT INFORMATION
  Report Type: Spontaneous
  Country: US (occurrence: US)
  Receive Date: 20230322
  Receipt Date: 20230322
  Transmission Date: 20230417
  Serious: No
  Sender: FDA-Public Use
  Company Number: US-ALLERGAN-2235928US

PATIENT

DRUGS (1)
  1. KYBELLA [Suspect]
     Active Substance: DEOXYCHOLIC ACID
     Indication: Lipolysis procedure
     Dosage: UNK, SINGLE
     Dates: start: 20221028, end: 20221028

REACTIONS (3)
  - Contusion [Unknown]
  - Skin discolouration [Unknown]
  - Erythema [Unknown]

NARRATIVE: CASE EVENT DATE: 20221028
